FAERS Safety Report 7929744-1 (Version None)
Quarter: 2011Q4

REPORT INFORMATION
  Report Type: 
  Country: None (occurrence: None)
  Receive Date: 20111121
  Receipt Date: 20111115
  Transmission Date: 20120403
  Serious: Yes (Hospitalization)
  Sender: FDA-Public Use
  Company Number: PHHO2011DE09809

PATIENT
  Sex: Male
  Weight: 89.9 kg

DRUGS (10)
  1. MOVIPREP [Concomitant]
     Indication: CONSTIPATION
  2. ASPIRIN [Concomitant]
     Indication: ARRHYTHMIA
  3. VALSARTAN [Suspect]
     Dosage: DOUBLE BLIND
     Route: 048
     Dates: start: 20101104, end: 20100606
  4. BLINDED NO TREATMENT RECEIVED [Suspect]
     Dosage: DOUBLE BLIND
     Route: 048
     Dates: start: 20101104, end: 20100606
  5. METFORMIN HCL [Suspect]
     Indication: DIABETES MELLITUS
  6. METOPROLOL TARTRATE [Concomitant]
     Indication: HYPERTENSION
  7. TORSEMIDE [Concomitant]
     Indication: HYPERTENSION
  8. MAGNESIUM [Concomitant]
     Indication: MUSCLE SPASMS
  9. DOXAZOSIN MESYLATE [Concomitant]
     Indication: HYPERTENSION
  10. ENALAPRIL MALEATE [Suspect]
     Dosage: DOUBLE BLIND
     Route: 048
     Dates: start: 20101104, end: 20100606

REACTIONS (2)
  - PANCREATIC CARCINOMA [None]
  - JAUNDICE [None]
